FAERS Safety Report 9414088 (Version 1)
Quarter: 2013Q3

REPORT INFORMATION
  Report Type: Spontaneous
  Country: US (occurrence: US)
  Receive Date: 20130723
  Receipt Date: 20130723
  Transmission Date: 20140515
  Serious: No
  Sender: FDA-Public Use
  Company Number: US-B.I. PHARMACEUTICALS,INC./RIDGEFIELD-2013-BI-21244BP

PATIENT
  Age: 93 Year
  Sex: Female

DRUGS (8)
  1. COMBIVENT [Suspect]
     Indication: CHRONIC OBSTRUCTIVE PULMONARY DISEASE
     Dosage: STRENGTH: 20 MCG / 100 MCG; DAILY DOSE: 160 MCG/800 MCG
     Route: 055
     Dates: start: 201306
  2. DILTIAZEM [Concomitant]
     Indication: CARDIAC DISORDER
     Route: 048
     Dates: start: 2007
  3. FLUTICASONE [Concomitant]
     Indication: HYPERSENSITIVITY
     Dosage: FORM:(NASAL SPRAY)
     Route: 045
     Dates: start: 2007
  4. LORATADINE [Concomitant]
     Indication: HYPERSENSITIVITY
     Route: 048
     Dates: start: 2007
  5. ASMANEX [Concomitant]
     Indication: HYPERSENSITIVITY
     Dosage: FORM:(INHALATION SOLUTION)
     Route: 055
     Dates: start: 2007
  6. LEVOTHYROXINE [Concomitant]
     Indication: THYROID DISORDER
     Route: 048
     Dates: start: 2007
  7. LATANOPROST EYEDROPS [Concomitant]
     Indication: GLAUCOMA
     Dates: start: 2007
  8. FUROSEMIDE [Concomitant]
     Indication: FLUID RETENTION
     Dates: start: 2007

REACTIONS (1)
  - Drug prescribing error [Not Recovered/Not Resolved]
